FAERS Safety Report 17213253 (Version 2)
Quarter: 2021Q4

REPORT INFORMATION
  Report Type: Report from Study
  Country: JP (occurrence: JP)
  Receive Date: 20191230
  Receipt Date: 20211006
  Transmission Date: 20220303
  Serious: Yes (Hospitalization, Other)
  Sender: FDA-Public Use
  Company Number: JP-BAYER-2019-229379

PATIENT
  Age: 80 Year
  Sex: Male
  Weight: 67 kg

DRUGS (17)
  1. XARELTO [Suspect]
     Active Substance: RIVAROXABAN
     Indication: Pulmonary embolism
     Dosage: 30MG/DAY, TWICE DAILY
     Route: 048
     Dates: start: 20170530, end: 20170619
  2. XARELTO [Suspect]
     Active Substance: RIVAROXABAN
     Indication: Deep vein thrombosis
     Dosage: 15 MG, QD
     Route: 048
     Dates: start: 20170620, end: 20170802
  3. XARELTO [Suspect]
     Active Substance: RIVAROXABAN
     Indication: Pulmonary embolism
     Dosage: 15 MG, QD
     Route: 048
     Dates: start: 20170805, end: 20170830
  4. XARELTO [Suspect]
     Active Substance: RIVAROXABAN
     Indication: Pulmonary embolism
     Dosage: 15 MG, QD
     Route: 048
     Dates: start: 20170902
  5. VALSARTAN [Concomitant]
     Active Substance: VALSARTAN
     Dosage: DAILY DOSE 80 MG
     Route: 048
     Dates: start: 20170601, end: 20170628
  6. HYDROCHLOROTHIAZIDE\VALSARTAN [Concomitant]
     Active Substance: HYDROCHLOROTHIAZIDE\VALSARTAN
     Dosage: DAILY DOSE 80 MG
     Route: 048
     Dates: start: 20170629
  7. ESOMEPRAZOLE. [Concomitant]
     Active Substance: ESOMEPRAZOLE MAGNESIUM
     Dosage: DAILY DOSE 20 MG
     Route: 048
  8. METHYLCOBALAMIN [Concomitant]
     Active Substance: METHYLCOBALAMIN
     Dosage: DAILY DOSE 1500 UG
     Route: 048
  9. LIMAPROST [Concomitant]
     Active Substance: LIMAPROST
     Dosage: DAILY DOSE 60 UG
     Route: 048
  10. NEUROTROPIN [CYANOCOBALAMIN;LIDOCAINE HYDROCHLORIDE;PYRIDOXINE HYD [Concomitant]
     Dosage: DAILY DOSE 16 IU
     Route: 048
  11. THEOPHYLLINE ANHYDROUS [Concomitant]
     Active Substance: THEOPHYLLINE ANHYDROUS
     Dosage: DAILY DOSE 400 MG
     Route: 048
  12. TULOBUTEROL [Concomitant]
     Active Substance: TULOBUTEROL
     Dosage: DAILY DOSE 2 MG
     Route: 003
  13. SILODOSIN [Concomitant]
     Active Substance: SILODOSIN
     Dosage: DAILY DOSE 8 MG
     Route: 048
     Dates: start: 20170605
  14. SODIUM FERROUS CITRATE [Concomitant]
     Active Substance: SODIUM FERROUS CITRATE
     Dosage: DAILY DOSE 100 MG
     Route: 048
     Dates: start: 20170613
  15. DUTASTERIDE [Concomitant]
     Active Substance: DUTASTERIDE
     Dosage: DAILY DOSE 0.5 MG
     Route: 048
     Dates: start: 20170703
  16. AMLODIPINE [Concomitant]
     Active Substance: AMLODIPINE BESYLATE
     Dosage: DAILY DOSE 2.5 MG
     Route: 048
     Dates: start: 20170727, end: 20180822
  17. AMLODIPINE [Concomitant]
     Active Substance: AMLODIPINE BESYLATE
     Dosage: DAILY DOSE 5 MG
     Route: 048
     Dates: start: 20180823

REACTIONS (4)
  - Adenocarcinoma of colon [Not Recovered/Not Resolved]
  - Tumour haemorrhage [Not Recovered/Not Resolved]
  - Large intestine polyp [Not Recovered/Not Resolved]
  - Blood pressure increased [Not Recovered/Not Resolved]

NARRATIVE: CASE EVENT DATE: 20170703
